FAERS Safety Report 4339942-4 (Version None)
Quarter: 2004Q2

REPORT INFORMATION
  Report Type: 
  Country: None (occurrence: None)
  Receive Date: 20040414
  Receipt Date: 20040401
  Transmission Date: 20050107
  Serious: Yes (Hospitalization, Other)
  Sender: FDA-Public Use
  Company Number: 2004000384

PATIENT
  Age: 67 Year
  Sex: Female

DRUGS (7)
  1. GLUCOTROL [Suspect]
     Indication: DIABETES MELLITUS
     Dosage: 2.5 MG (DAILY), ORAL
     Route: 048
     Dates: start: 20000101
  2. GLUCOTROL XL [Suspect]
     Indication: DIABETES MELLITUS
     Dosage: 20 MG (BID), ORAL
     Route: 048
  3. ZITHROMAX [Suspect]
     Indication: RESPIRATORY TRACT INFECTION
     Dosage: ORAL
     Route: 048
     Dates: start: 20031228
  4. METHYLPREDNISOLONE [Suspect]
     Indication: RESPIRATORY TRACT INFECTION
     Dates: start: 20040101
  5. RAMIPRIL [Suspect]
     Indication: ILL-DEFINED DISORDER
     Dosage: 5 MG (DAILY)
  6. ISOSORBIDE MONONITRATE [Suspect]
     Indication: ILL-DEFINED DISORDER
     Dosage: 15 MG (DAILY)
  7. DILTIAZEM HYDROCHLORIDE [Concomitant]

REACTIONS (15)
  - ANXIETY [None]
  - BLOOD GLUCOSE INCREASED [None]
  - BLOOD PRESSURE INCREASED [None]
  - BRONCHITIS [None]
  - DEPRESSED MOOD [None]
  - HYPOTENSION [None]
  - INTESTINAL OBSTRUCTION [None]
  - LEFT VENTRICULAR FAILURE [None]
  - PANCREATIC DISORDER [None]
  - PANCREATIC NEOPLASM [None]
  - PHARYNGITIS [None]
  - RESPIRATORY TRACT INFECTION [None]
  - RIGHT VENTRICULAR FAILURE [None]
  - STRESS SYMPTOMS [None]
  - WEIGHT INCREASED [None]
